FAERS Safety Report 11767534 (Version 2)
Quarter: 2017Q3

REPORT INFORMATION
  Report Type: Spontaneous
  Country: US (occurrence: US)
  Receive Date: 20151123
  Receipt Date: 20170913
  Transmission Date: 20171127
  Serious: Yes (Hospitalization, Other)
  Sender: FDA-Public Use
  Company Number: US-TAKEDA-2015MPI007718

PATIENT
  Age: 68 Year
  Sex: Female
  Weight: 57.14 kg

DRUGS (13)
  1. REVLIMID [Concomitant]
     Active Substance: LENALIDOMIDE
     Dosage: 10 MG, UNK
     Route: 065
  2. ACYCLOVIR                          /00587301/ [Concomitant]
     Active Substance: ACYCLOVIR
     Dosage: 400 MG, UNK
     Route: 065
  3. COUMADIN [Concomitant]
     Active Substance: WARFARIN SODIUM
     Dosage: UNK
     Route: 065
  4. BABY ASPIRIN [Concomitant]
     Active Substance: ASPIRIN
     Dosage: 81 MG, UNK
     Route: 065
  5. PREDNISONE. [Suspect]
     Active Substance: PREDNISONE
     Indication: PLASMA CELL MYELOMA
     Dosage: 5 MG, QD
     Route: 048
     Dates: start: 201610
  6. LETROZOLE. [Concomitant]
     Active Substance: LETROZOLE
     Dosage: UNK
  7. AMOXICILLIN CLAVULANIC ACID [Concomitant]
     Active Substance: AMOXICILLIN\CLAVULANIC ACID
     Dosage: 500 MG, UNK
     Route: 065
  8. FLUCONAZOLE. [Concomitant]
     Active Substance: FLUCONAZOLE
     Dosage: 200 MG, UNK
     Route: 065
  9. VELCADE [Suspect]
     Active Substance: BORTEZOMIB
     Indication: PLASMA CELL MYELOMA
     Dosage: UNK, 1/WEEK
     Route: 058
     Dates: start: 201505
  10. METOPROLOL. [Concomitant]
     Active Substance: METOPROLOL
     Dosage: 6.5 MG, UNK
     Route: 065
  11. EXEMESTANE. [Concomitant]
     Active Substance: EXEMESTANE
     Dosage: 25 MG, UNK
     Route: 065
  12. DEXAMETHASONE. [Suspect]
     Active Substance: DEXAMETHASONE
     Indication: PLASMA CELL MYELOMA
     Dosage: 40 MG, 1/WEEK
     Route: 065
  13. ALENDRONATE [Concomitant]
     Active Substance: ALENDRONATE SODIUM
     Dosage: 70 MG, 1/WEEK
     Route: 065

REACTIONS (4)
  - Injection site rash [Not Recovered/Not Resolved]
  - Cellulitis [Recovered/Resolved]
  - Platelet count decreased [Unknown]
  - Adrenal insufficiency [Unknown]

NARRATIVE: CASE EVENT DATE: 201506
